FAERS Safety Report 14917211 (Version 1)
Quarter: 2018Q2

REPORT INFORMATION
  Report Type: Spontaneous
  Country: CA (occurrence: CA)
  Receive Date: 20180521
  Receipt Date: 20180521
  Transmission Date: 20180711
  Serious: Yes (Hospitalization, Other)
  Sender: FDA-Public Use
  Company Number: CA-DENTSPLY-2018SCDP000134

PATIENT
  Age: 63 Year
  Sex: Female

DRUGS (1)
  1. LIDOCAIN WITH ADRENALINE (EPINEPHRINE) [Suspect]
     Active Substance: EPINEPHRINE HYDROCHLORIDE\LIDOCAINE HYDROCHLORIDE
     Indication: LOCAL ANAESTHESIA
     Dosage: UNK
     Route: 058

REACTIONS (2)
  - Extremity necrosis [Unknown]
  - Finger amputation [Unknown]
